FAERS Safety Report 24713557 (Version 1)
Quarter: 2024Q4

REPORT INFORMATION
  Report Type: Spontaneous
  Country: US (occurrence: US)
  Receive Date: 20241209
  Receipt Date: 20241209
  Transmission Date: 20250115
  Serious: No
  Sender: SANOFI AVENTIS
  Company Number: US-SA-2024SA361613

PATIENT
  Age: 60 Year
  Sex: Female
  Weight: 119.09 kg

DRUGS (1)
  1. DUPIXENT [Suspect]
     Active Substance: DUPILUMAB
     Indication: Neurodermatitis
     Dosage: 300 MG, QOW
     Route: 058
     Dates: start: 202411

REACTIONS (4)
  - Limb discomfort [Unknown]
  - Procedural pain [Not Recovered/Not Resolved]
  - Pruritus [Unknown]
  - Shoulder operation [Unknown]

NARRATIVE: CASE EVENT DATE: 20241101
